FAERS Safety Report 15461455 (Version 2)
Quarter: 2018Q4

REPORT INFORMATION
  Report Type: Spontaneous
  Country: GB (occurrence: GB)
  Receive Date: 20181003
  Receipt Date: 20181025
  Transmission Date: 20190204
  Serious: Yes (Life-Threatening, Hospitalization)
  Sender: FDA-Public Use
  Company Number: GB-PFIZER INC-2018394305

PATIENT
  Age: 56 Year
  Sex: Male

DRUGS (23)
  1. RANITIDINE. [Concomitant]
     Active Substance: RANITIDINE
     Dosage: UNK
  2. ACETYLSALICYLIC ACID [Concomitant]
     Active Substance: ASPIRIN
     Dosage: UNK
  3. ALBUMIN HUMAN [Concomitant]
     Active Substance: ALBUMIN HUMAN
  4. ATORVASTATIN [Suspect]
     Active Substance: ATORVASTATIN
     Indication: ACUTE MYOCARDIAL INFARCTION
     Dosage: 40 MG, UNK
     Route: 051
     Dates: start: 20180819, end: 20180831
  5. PHOSPHATE SANDOZ [Concomitant]
     Active Substance: SODIUM PHOSPHATE, MONOBASIC, ANHYDROUS
     Dosage: UNK
  6. POTASSIUM CHLORIDE. [Concomitant]
     Active Substance: POTASSIUM CHLORIDE
  7. DEXTROSE. [Concomitant]
     Active Substance: DEXTROSE
     Dosage: UNK
  8. MEROPENEM. [Concomitant]
     Active Substance: MEROPENEM
     Indication: SEPSIS
     Dosage: UNK
  9. ENOXAPARIN SODIUM. [Concomitant]
     Active Substance: ENOXAPARIN SODIUM
     Dosage: UNK
  10. SIMVASTATIN. [Concomitant]
     Active Substance: SIMVASTATIN
     Dosage: UNK
  11. LACTULOSE. [Concomitant]
     Active Substance: LACTULOSE
     Dosage: UNK
  12. PIPERACILLIN SODIUM/TAZOBACTAM SODIUM [Concomitant]
     Dosage: UNK
  13. RAMIPRIL. [Concomitant]
     Active Substance: RAMIPRIL
     Dosage: UNK
  14. ATRACURIUM [Concomitant]
     Active Substance: ATRACURIUM
     Dosage: UNK
  15. BISOPROLOL [Concomitant]
     Active Substance: BISOPROLOL
  16. REMIFENTANIL [Concomitant]
     Active Substance: REMIFENTANIL
     Dosage: UNK
  17. HUMAN ACTRAPID [Concomitant]
     Active Substance: INSULIN HUMAN
     Dosage: UNK
  18. PARACETAMOL [Concomitant]
     Active Substance: ACETAMINOPHEN
     Dosage: UNK
  19. FUROSEMIDE. [Concomitant]
     Active Substance: FUROSEMIDE
     Dosage: UNK
  20. HYDROCORTISONE. [Concomitant]
     Active Substance: HYDROCORTISONE
     Dosage: UNK
  21. CALCIUM GLUCONATE. [Concomitant]
     Active Substance: CALCIUM GLUCONATE
     Dosage: UNK
  22. TICAGRELOR. [Concomitant]
     Active Substance: TICAGRELOR
     Dosage: UNK
  23. SALBUTAMOL [Concomitant]
     Active Substance: ALBUTEROL
     Dosage: UNK

REACTIONS (7)
  - Urine output decreased [Unknown]
  - Product use issue [Unknown]
  - Acute kidney injury [Not Recovered/Not Resolved]
  - Acute respiratory distress syndrome [Unknown]
  - Asthenia [Unknown]
  - Chromaturia [Unknown]
  - Sepsis [Unknown]

NARRATIVE: CASE EVENT DATE: 20180819
